FAERS Safety Report 4961988-3 (Version None)
Quarter: 2006Q2

REPORT INFORMATION
  Report Type: 
  Country: None (occurrence: None)
  Receive Date: 20060404
  Receipt Date: 20060202
  Transmission Date: 20061013
  Serious: Yes (Hospitalization)
  Sender: FDA-Public Use
  Company Number: US-MERCK-0602USA01760

PATIENT
  Age: 62 Year
  Sex: Female
  Weight: 80 kg

DRUGS (6)
  1. VIOXX [Suspect]
     Indication: ARTHRALGIA
     Route: 048
     Dates: start: 20010801, end: 20011201
  2. VIOXX [Suspect]
     Route: 048
     Dates: start: 20020101, end: 20020501
  3. VIOXX [Suspect]
     Route: 048
     Dates: start: 20021101, end: 20030701
  4. VIOXX [Suspect]
     Route: 048
     Dates: start: 20010801, end: 20011201
  5. VIOXX [Suspect]
     Route: 048
     Dates: start: 20020101, end: 20020501
  6. VIOXX [Suspect]
     Route: 048
     Dates: start: 20021101, end: 20030701

REACTIONS (14)
  - ABDOMINAL PAIN [None]
  - ACUTE MYOCARDIAL INFARCTION [None]
  - ANXIETY [None]
  - ASTHENIA [None]
  - BRAIN HERNIATION [None]
  - CARDIOVASCULAR DISORDER [None]
  - CHEST DISCOMFORT [None]
  - CONDITION AGGRAVATED [None]
  - DYSPNOEA [None]
  - GAIT DISTURBANCE [None]
  - HEADACHE [None]
  - HYPERTENSION [None]
  - INJURY [None]
  - MYOCARDIAL INFARCTION [None]
